FAERS Safety Report 12885761 (Version 1)
Quarter: 2016Q4

REPORT INFORMATION
  Report Type: Spontaneous
  Country: IN (occurrence: IN)
  Receive Date: 20161026
  Receipt Date: 20161026
  Transmission Date: 20170207
  Serious: Yes (Death, Hospitalization, Other)
  Sender: FDA-Public Use
  Company Number: IN-ASTELLAS-2016US042219

PATIENT
  Age: 60 Year
  Sex: Male

DRUGS (1)
  1. AMBISOME [Suspect]
     Active Substance: AMPHOTERICIN B
     Indication: FUNGAL INFECTION
     Dosage: 0.6-1.0 MG/KG, ONCE DAILY
     Route: 065

REACTIONS (2)
  - Off label use [Unknown]
  - Drug ineffective [Fatal]
